FAERS Safety Report 4778969-5 (Version None)
Quarter: 2005Q3

REPORT INFORMATION
  Report Type: 
  Country: None (occurrence: None)
  Receive Date: 20050922
  Receipt Date: 20050919
  Transmission Date: 20060218
  Serious: Yes (Life-Threatening, Other)
  Sender: FDA-Public Use
  Company Number: DEWYE987519SEP05

PATIENT
  Sex: Male

DRUGS (1)
  1. TAZOBAC (PIPERACILLIN/TAZOBACTAM, INJECTION) [Suspect]
     Indication: SOFT TISSUE INFECTION
     Dosage: 4.5 G 3X PER 1 DAY INTRAVENOUS
     Route: 042
     Dates: start: 20050708, end: 20050729

REACTIONS (3)
  - BODY TEMPERATURE INCREASED [None]
  - LEUKOPENIA [None]
  - PLATELET COUNT DECREASED [None]
